FAERS Safety Report 14783964 (Version 4)
Quarter: 2018Q2

REPORT INFORMATION
  Report Type: Spontaneous
  Country: HN (occurrence: HN)
  Receive Date: 20180420
  Receipt Date: 20180628
  Transmission Date: 20180711
  Serious: No
  Sender: FDA-Public Use
  Company Number: HN-GLAXOSMITHKLINE-HN2018GSK067911

PATIENT
  Age: 62 Year
  Sex: Female
  Weight: 72 kg

DRUGS (6)
  1. PREDIN ONA [Concomitant]
     Indication: CHRONIC OBSTRUCTIVE PULMONARY DISEASE
     Dosage: 1 DF, QD
     Route: 048
  2. RELVAR ELLIPTA [Suspect]
     Active Substance: FLUTICASONE FUROATE\VILANTEROL TRIFENATATE
     Indication: CHRONIC OBSTRUCTIVE PULMONARY DISEASE
     Dosage: 100 ?G, QD
     Route: 055
  3. ACETAMINOPHEN. [Concomitant]
     Active Substance: ACETAMINOPHEN
     Indication: INFECTION
     Dosage: 500 MG, TID
     Route: 048
  4. SERTAL [Concomitant]
     Indication: PRODUCT USED FOR UNKNOWN INDICATION
     Dosage: UNK
  5. SALBUTAMOL [Concomitant]
     Active Substance: ALBUTEROL
     Indication: CHRONIC OBSTRUCTIVE PULMONARY DISEASE
     Dosage: UNK
     Route: 055
  6. AUGMENTIN [Concomitant]
     Active Substance: AMOXICILLIN\CLAVULANATE POTASSIUM
     Indication: INFECTION
     Dosage: UNK UNK, BID
     Route: 048

REACTIONS (4)
  - Chronic obstructive pulmonary disease [Recovered/Resolved]
  - Product quality issue [Unknown]
  - Dyspnoea [Recovered/Resolved]
  - Wrong technique in product usage process [Unknown]
